FAERS Safety Report 14643170 (Version 3)
Quarter: 2018Q2

REPORT INFORMATION
  Report Type: Spontaneous
  Country: ES (occurrence: ES)
  Receive Date: 20180315
  Receipt Date: 20180524
  Transmission Date: 20180711
  Serious: Yes (Hospitalization, Other)
  Sender: FDA-Public Use
  Company Number: ES-ALLERGAN-1812019US

PATIENT
  Age: 71 Year
  Sex: Female

DRUGS (5)
  1. GANFORT [Suspect]
     Active Substance: BIMATOPROST\TIMOLOL
     Indication: ASTHENOPIA
  2. GANFORT [Suspect]
     Active Substance: BIMATOPROST\TIMOLOL
     Indication: GLAUCOMA
     Dosage: 1 GTT, QHS
     Route: 047
     Dates: start: 2017, end: 20180515
  3. MONOPROST [Suspect]
     Active Substance: LATANOPROST
     Dosage: UNK
     Route: 047
     Dates: start: 2017
  4. URBASON [Suspect]
     Active Substance: METHYLPREDNISOLONE
     Indication: ASTHMATIC CRISIS
     Dosage: 40 UNITS, SINGLE
     Route: 065
  5. MONOPROST [Suspect]
     Active Substance: LATANOPROST
     Indication: GLAUCOMA
     Dosage: UNK
     Route: 047
     Dates: end: 20180515

REACTIONS (7)
  - Blood glucose increased [Unknown]
  - Eye swelling [Unknown]
  - Eye irritation [Recovered/Resolved]
  - Asthmatic crisis [Unknown]
  - Intraocular pressure increased [Unknown]
  - Contraindicated drug prescribed [Unknown]
  - Asthmatic crisis [Recovering/Resolving]

NARRATIVE: CASE EVENT DATE: 201801
